FAERS Safety Report 5036779-8 (Version None)
Quarter: 2006Q2

REPORT INFORMATION
  Report Type: 
  Country: None (occurrence: None)
  Receive Date: 20060601
  Receipt Date: 20050721
  Transmission Date: 20061013
  Serious: Yes (Hospitalization)
  Sender: FDA-Public Use
  Company Number: 2005US000969

PATIENT
  Age: 50 Year
  Sex: Female

DRUGS (6)
  1. PROGRAF [Suspect]
     Indication: PROPHYLAXIS AGAINST TRANSPLANT REJECTION
     Dosage: 1.00 MG, BID
  2. SERZONE [Concomitant]
  3. ACTONEL [Concomitant]
  4. WELLBUTRIN SR [Concomitant]
  5. ALTACE [Concomitant]
  6. LUNESTA [Concomitant]

REACTIONS (2)
  - DRUG LEVEL INCREASED [None]
  - NEUROLOGICAL SYMPTOM [None]
